FAERS Safety Report 23331555 (Version 1)
Quarter: 2023Q4

REPORT INFORMATION
  Report Type: Report from Study
  Country: US (occurrence: None)
  Receive Date: 20231222
  Receipt Date: 20231222
  Transmission Date: 20240110
  Serious: Yes (Other)
  Sender: FDA-Public Use
  Company Number: 2023A287136

PATIENT

DRUGS (1)
  1. FARXIGA [Suspect]
     Active Substance: DAPAGLIFLOZIN PROPANEDIOL
     Route: 048

REACTIONS (29)
  - Deafness [Unknown]
  - Fatigue [Unknown]
  - Chills [Unknown]
  - Fatigue [Unknown]
  - Pyrexia [Unknown]
  - Malaise [Unknown]
  - Night sweats [Unknown]
  - Weight increased [Unknown]
  - Ear pain [Unknown]
  - Otorrhoea [Unknown]
  - Rhinorrhoea [Unknown]
  - Paranasal sinus discomfort [Unknown]
  - Oropharyngeal pain [Unknown]
  - Eye discharge [Unknown]
  - Eye pain [Unknown]
  - Dyspnoea [Unknown]
  - Cough [Unknown]
  - Exposure to communicable disease [Unknown]
  - Wheezing [Unknown]
  - Chest pain [Unknown]
  - Intermittent claudication [Unknown]
  - Oedema [Unknown]
  - Heart rate irregular [Unknown]
  - Decreased appetite [Unknown]
  - Diarrhoea [Unknown]
  - Dyspepsia [Unknown]
  - Nausea [Unknown]
  - Vomiting [Unknown]
  - Visual impairment [Unknown]
